FAERS Safety Report 7933048-0 (Version None)
Quarter: 2011Q4

REPORT INFORMATION
  Report Type: 
  Country: None (occurrence: None)
  Receive Date: 20111122
  Receipt Date: 20111109
  Transmission Date: 20120403
  Serious: Yes (Hospitalization, Other)
  Sender: FDA-Public Use
  Company Number: US-ELI_LILLY_AND_COMPANY-US201009003816

PATIENT
  Sex: Male

DRUGS (1)
  1. FORTEO [Suspect]
     Indication: OSTEOPOROSIS
     Dosage: 20 UG, DAILY (1/D)
     Route: 065
     Dates: start: 20100101

REACTIONS (6)
  - OSTEOARTHRITIS [None]
  - PAIN IN EXTREMITY [None]
  - PAIN [None]
  - READING DISORDER [None]
  - NECK PAIN [None]
  - INSOMNIA [None]
